FAERS Safety Report 24027351 (Version 1)
Quarter: 2024Q2

REPORT INFORMATION
  Report Type: Spontaneous
  Country: US (occurrence: US)
  Receive Date: 20240628
  Receipt Date: 20240628
  Transmission Date: 20240715
  Serious: No
  Sender: FDA-Public Use
  Company Number: US-SCILEX PHARMACEUTICALS INC.-US-SOR-23-00013

PATIENT
  Sex: Female

DRUGS (1)
  1. ELYXYB [Suspect]
     Active Substance: CELECOXIB
     Indication: Migraine
     Dosage: UNK, UNK
     Route: 065

REACTIONS (1)
  - Nausea [Unknown]
